FAERS Safety Report 19780779 (Version 1)
Quarter: 2021Q3

REPORT INFORMATION
  Report Type: Spontaneous
  Country: US (occurrence: US)
  Receive Date: 20210902
  Receipt Date: 20210902
  Transmission Date: 20211014
  Serious: No
  Sender: FDA-Public Use
  Company Number: US-PFIZER INC-202101008472

PATIENT

DRUGS (1)
  1. PREMARIN [Suspect]
     Active Substance: ESTROGENS, CONJUGATED
     Dosage: UNK (LITTLE BIT MORE THAN TWICE A WEEK SO, I WAS GOING LIKE EVERY THREE DAYS)

REACTIONS (2)
  - Fatigue [Unknown]
  - Off label use [Unknown]
